FAERS Safety Report 12219144 (Version 2)
Quarter: 2016Q2

REPORT INFORMATION
  Report Type: Report from Study
  Country: NL (occurrence: NL)
  Receive Date: 20160329
  Receipt Date: 20160413
  Transmission Date: 20160815
  Serious: No
  Sender: FDA-Public Use
  Company Number: NL-CELGENE-NLD-2016034739

PATIENT
  Age: 81 Year
  Sex: Male
  Weight: 74 kg

DRUGS (16)
  1. ABRAXANE [Suspect]
     Active Substance: PACLITAXEL
     Route: 041
     Dates: start: 20151210, end: 20151210
  2. GEMCITABINE [Concomitant]
     Active Substance: GEMCITABINE\GEMCITABINE HYDROCHLORIDE
     Route: 065
     Dates: start: 20160114, end: 20160114
  3. ABRAXANE [Suspect]
     Active Substance: PACLITAXEL
     Route: 041
     Dates: start: 20160107, end: 20160107
  4. ABRAXANE [Suspect]
     Active Substance: PACLITAXEL
     Route: 041
     Dates: start: 20160211, end: 20160211
  5. GEMCITABINE [Concomitant]
     Active Substance: GEMCITABINE\GEMCITABINE HYDROCHLORIDE
     Route: 065
     Dates: start: 20151210, end: 20151210
  6. ABRAXANE [Suspect]
     Active Substance: PACLITAXEL
     Route: 041
     Dates: start: 20160114, end: 20160114
  7. GEMCITABINE [Concomitant]
     Active Substance: GEMCITABINE\GEMCITABINE HYDROCHLORIDE
     Indication: PANCREATIC CARCINOMA
     Route: 065
     Dates: start: 20151203, end: 20151203
  8. GEMCITABINE [Concomitant]
     Active Substance: GEMCITABINE\GEMCITABINE HYDROCHLORIDE
     Route: 065
     Dates: start: 20151231, end: 20151231
  9. GEMCITABINE [Concomitant]
     Active Substance: GEMCITABINE\GEMCITABINE HYDROCHLORIDE
     Route: 065
     Dates: start: 20160107, end: 20160107
  10. ABRAXANE [Suspect]
     Active Substance: PACLITAXEL
     Route: 041
     Dates: start: 20151217, end: 20151217
  11. ABRAXANE [Suspect]
     Active Substance: PACLITAXEL
     Indication: PANCREATIC CARCINOMA
     Route: 041
     Dates: start: 20151203, end: 20151203
  12. ABRAXANE [Suspect]
     Active Substance: PACLITAXEL
     Route: 041
     Dates: start: 20160204, end: 20160204
  13. GEMCITABINE [Concomitant]
     Active Substance: GEMCITABINE\GEMCITABINE HYDROCHLORIDE
     Route: 065
     Dates: start: 20151217, end: 20151217
  14. ABRAXANE [Suspect]
     Active Substance: PACLITAXEL
     Route: 041
     Dates: start: 20151231, end: 20151231
  15. GEMCITABINE [Concomitant]
     Active Substance: GEMCITABINE\GEMCITABINE HYDROCHLORIDE
     Route: 065
     Dates: start: 20160204, end: 20160204
  16. GEMCITABINE [Concomitant]
     Active Substance: GEMCITABINE\GEMCITABINE HYDROCHLORIDE
     Route: 065
     Dates: start: 20160211, end: 20160211

REACTIONS (2)
  - Pancreatic carcinoma [Unknown]
  - Neuropathy peripheral [Not Recovered/Not Resolved]

NARRATIVE: CASE EVENT DATE: 20160225
